FAERS Safety Report 21877954 (Version 1)
Quarter: 2023Q1

REPORT INFORMATION
  Report Type: Spontaneous
  Country: DE (occurrence: DE)
  Receive Date: 20230118
  Receipt Date: 20230118
  Transmission Date: 20230418
  Serious: Yes (Other)
  Sender: FDA-Public Use
  Company Number: DE-002147023-NVSC2022DE265954

PATIENT
  Sex: Female

DRUGS (8)
  1. XALATAN [Suspect]
     Active Substance: LATANOPROST
     Indication: Normal tension glaucoma
     Dosage: UNK
  2. AZOPT [Suspect]
     Active Substance: BRINZOLAMIDE
     Indication: Intraocular pressure increased
     Dosage: UNK, QD
     Dates: start: 202211
  3. AZOPT [Suspect]
     Active Substance: BRINZOLAMIDE
     Indication: Normal tension glaucoma
     Dosage: UNK, BID
     Dates: start: 202211, end: 202211
  4. AZOPT [Suspect]
     Active Substance: BRINZOLAMIDE
     Dosage: UNK (IRREGULARLY)
  5. ELIQUIS [Concomitant]
     Active Substance: APIXABAN
     Indication: Product used for unknown indication
     Dosage: UNK
     Route: 065
  6. CANDESARTAN [Concomitant]
     Active Substance: CANDESARTAN
     Indication: Product used for unknown indication
     Dosage: UNK
     Route: 065
  7. NEXIUM [Concomitant]
     Active Substance: ESOMEPRAZOLE MAGNESIUM
     Indication: Product used for unknown indication
     Dosage: UNK
     Route: 065
  8. TAMBOCOR [Concomitant]
     Active Substance: FLECAINIDE ACETATE
     Indication: Product used for unknown indication
     Dosage: UNK
     Route: 065

REACTIONS (5)
  - Glaucoma [Unknown]
  - Intraocular pressure increased [Unknown]
  - Optic atrophy [Unknown]
  - Atrial fibrillation [Unknown]
  - Product use complaint [Unknown]

NARRATIVE: CASE EVENT DATE: 20221101
